FAERS Safety Report 9123403 (Version 1)
Quarter: 2013Q1

REPORT INFORMATION
  Report Type: Spontaneous
  Country: US (occurrence: US)
  Receive Date: 20130227
  Receipt Date: 20130227
  Transmission Date: 20140127
  Serious: Yes (Hospitalization)
  Sender: FDA-Public Use
  Company Number: US-GILEAD-2012-0063867

PATIENT
  Sex: Male

DRUGS (3)
  1. LETAIRIS [Suspect]
     Indication: PULMONARY ARTERIAL HYPERTENSION
     Route: 048
     Dates: end: 20120105
  2. ADCIRCA [Concomitant]
  3. FUROSEMIDE [Concomitant]

REACTIONS (3)
  - Cardiac failure [Unknown]
  - Oedema peripheral [Unknown]
  - Fluid overload [Unknown]
